FAERS Safety Report 7276593-6 (Version None)
Quarter: 2011Q1

REPORT INFORMATION
  Report Type: 
  Country: None (occurrence: None)
  Receive Date: 20110204
  Receipt Date: 20110125
  Transmission Date: 20110831
  Serious: Yes (Other)
  Sender: FDA-Public Use
  Company Number: PL-ABBOTT-11P-129-0702102-00

PATIENT
  Age: 60 Year
  Sex: Male

DRUGS (1)
  1. TARKA [Suspect]
     Indication: PRODUCT USED FOR UNKNOWN INDICATION

REACTIONS (2)
  - HYPOTONIA [None]
  - BRADYCARDIA [None]
